FAERS Safety Report 8048162-1 (Version None)
Quarter: 2012Q1

REPORT INFORMATION
  Report Type: 
  Country: None (occurrence: None)
  Receive Date: 20120117
  Receipt Date: 20120109
  Transmission Date: 20120608
  Serious: Yes (Other)
  Sender: FDA-Public Use
  Company Number: US-JNJFOC-20111100922

PATIENT
  Sex: Female
  Weight: 115.21 kg

DRUGS (5)
  1. OXYCODONE HCL [Concomitant]
     Indication: ARTHRALGIA
     Dosage: 5/325MG TABLETS, 1-2 TABLETS EVERY 4 HOURS/ORAL
     Dates: start: 20111001
  2. PREDNISONE [Concomitant]
     Indication: PSORIATIC ARTHROPATHY
  3. METHOTREXATE [Concomitant]
     Indication: PSORIATIC ARTHROPATHY
  4. REMICADE [Suspect]
     Indication: RHEUMATOID ARTHRITIS
     Route: 042
  5. OMEPRAZOLE [Concomitant]
     Indication: GASTROOESOPHAGEAL REFLUX DISEASE

REACTIONS (2)
  - FALL [None]
  - LOWER LIMB FRACTURE [None]
